FAERS Safety Report 6542649-6 (Version None)
Quarter: 2010Q1

REPORT INFORMATION
  Report Type: 
  Country: None (occurrence: None)
  Receive Date: 20100119
  Receipt Date: 20100107
  Transmission Date: 20100710
  Serious: Yes (Hospitalization)
  Sender: FDA-Public Use
  Company Number: DE-ELI_LILLY_AND_COMPANY-DE201001001001

PATIENT
  Sex: Male
  Weight: 90 kg

DRUGS (9)
  1. FLUOXETINE HCL [Suspect]
     Dosage: UNK, UNKNOWN
     Route: 065
  2. AMLODIPINE BESYLATE [Concomitant]
     Dosage: UNK, UNKNOWN
     Route: 065
  3. LYRICA [Concomitant]
     Dosage: UNK, UNKNOWN
     Route: 065
  4. DILTIAZEM [Concomitant]
     Dosage: UNK, UNKNOWN
     Route: 065
  5. TAVOR [Concomitant]
     Dosage: UNK, UNKNOWN
     Route: 065
  6. CO-DIOVANE [Concomitant]
     Dosage: UNK, UNKNOWN
     Route: 065
  7. PROMETHAZINE [Concomitant]
     Dosage: UNK, UNKNOWN
     Route: 065
  8. TIMONIL [Concomitant]
     Dosage: UNK, UNKNOWN
     Route: 065
  9. TRANXILIUM [Concomitant]
     Dosage: UNK, UNKNOWN
     Route: 065

REACTIONS (4)
  - GASTROINTESTINAL SOUNDS ABNORMAL [None]
  - INTENTIONAL SELF-INJURY [None]
  - SOMNOLENCE [None]
  - SUICIDE ATTEMPT [None]
